FAERS Safety Report 16840315 (Version 4)
Quarter: 2019Q3

REPORT INFORMATION
  Report Type: Spontaneous
  Country: DE (occurrence: DE)
  Receive Date: 20190923
  Receipt Date: 20190924
  Transmission Date: 20191005
  Serious: Yes (Death, Other)
  Sender: FDA-Public Use
  Company Number: PHHY2019DE210782

PATIENT
  Age: 43 Year
  Sex: Male

DRUGS (9)
  1. DOCETAXEL. [Suspect]
     Active Substance: DOCETAXEL
     Dosage: 4 DF, CYCLIC
     Route: 065
  2. PREDNISOLON [Concomitant]
     Active Substance: PREDNISOLONE
     Indication: PRODUCT USED FOR UNKNOWN INDICATION
     Dosage: UNK UKN, UNK
     Route: 065
  3. LEUPRORELIN [Suspect]
     Active Substance: LEUPROLIDE ACETATE
     Indication: PROSTATE CANCER
     Dosage: UNK UKN, UNK
     Route: 065
  4. ABIRATERONE ACETATE. [Concomitant]
     Active Substance: ABIRATERONE ACETATE
     Indication: PRODUCT USED FOR UNKNOWN INDICATION
     Dosage: UNK UKN, UNK
     Route: 065
  5. CISPLATIN. [Suspect]
     Active Substance: CISPLATIN
     Indication: HORMONE-REFRACTORY PROSTATE CANCER
     Dosage: 30 MG/M2, QW
     Route: 042
  6. OLAPARIB. [Suspect]
     Active Substance: OLAPARIB
     Indication: HORMONE-REFRACTORY PROSTATE CANCER
     Dosage: UNK UKN, UNK
     Route: 048
  7. DOCETAXEL. [Suspect]
     Active Substance: DOCETAXEL
     Indication: PROSTATE CANCER
     Dosage: 6 DF, CYCLIC
     Route: 065
  8. ZOLEDRONATE [Suspect]
     Active Substance: ZOLEDRONIC ACID
     Indication: PROSTATE CANCER
     Dosage: UNK UKN, UNK
     Route: 065
  9. BICALUTAMIDE. [Suspect]
     Active Substance: BICALUTAMIDE
     Indication: PROSTATE CANCER
     Dosage: UNK UKN, UNK
     Route: 048

REACTIONS (14)
  - Prostate cancer [Fatal]
  - Anaemia [Unknown]
  - Fatigue [Unknown]
  - Drug resistance [Fatal]
  - Metastases to lymph nodes [Unknown]
  - Muscular weakness [Unknown]
  - Neutrophil count decreased [Unknown]
  - Acquired gene mutation [Fatal]
  - Metastases to bone [Unknown]
  - Metastases to liver [Fatal]
  - General physical health deterioration [Unknown]
  - Product use in unapproved indication [Unknown]
  - Off label use [Unknown]
  - Malignant neoplasm progression [Fatal]
